FAERS Safety Report 17051932 (Version 3)
Quarter: 2020Q1

REPORT INFORMATION
  Report Type: Spontaneous
  Country: PL (occurrence: PL)
  Receive Date: 20191120
  Receipt Date: 20200307
  Transmission Date: 20200409
  Serious: Yes (Disabling)
  Sender: FDA-Public Use
  Company Number: PL-ACCORD-161428

PATIENT
  Age: 68 Year
  Sex: Male

DRUGS (7)
  1. EPLERENONE. [Suspect]
     Active Substance: EPLERENONE
     Indication: PRODUCT USED FOR UNKNOWN INDICATION
     Dosage: 25 MG, 1X PER DAY, (MORNING)
  2. RAMIPRIL. [Suspect]
     Active Substance: RAMIPRIL
     Indication: PRODUCT USED FOR UNKNOWN INDICATION
     Dosage: 10 MG, 1X PER DAY, (IN THE MORNING)
  3. FUROSEMIDE. [Suspect]
     Active Substance: FUROSEMIDE
     Indication: HYPERTENSION
     Dosage: 40 MG 2 TIMES 1 TABLET DAILY (MORNING AND AFTERNOON)
  4. ALUMINIUM HYDROXIDE/MAGNESIUM HYDROXIDE [Suspect]
     Active Substance: ALUMINUM HYDROXIDE\MAGNESIUM HYDROXIDE
     Indication: PRODUCT USED FOR UNKNOWN INDICATION
     Dosage: 1 TIMES 1 TABLET DAILY (MORNING)
  5. ROSUVASTATIN. [Suspect]
     Active Substance: ROSUVASTATIN
     Indication: PRODUCT USED FOR UNKNOWN INDICATION
     Dosage: 20 MG, 1X PER DAY, (EVENING)
  6. CARVEDILOL/CARVEDILOL HYDROCHLODRIDE [Suspect]
     Active Substance: CARVEDILOL HYDROCHLORIDE
     Indication: PRODUCT USED FOR UNKNOWN INDICATION
     Dosage: 12.5 MG 2 TIMES 1 TABLET DAILY (MORNING AND EVENING)
  7. POTASSIUM [Suspect]
     Active Substance: POTASSIUM
     Indication: PRODUCT USED FOR UNKNOWN INDICATION
     Dosage: 2 TIMES 1 TABLET DAILY (MORNING AND EVENING)

REACTIONS (6)
  - Peripheral swelling [Unknown]
  - Treatment noncompliance [Unknown]
  - Blood pressure inadequately controlled [Unknown]
  - Fatigue [Unknown]
  - Dyspnoea [Unknown]
  - Micturition urgency [Unknown]
